FAERS Safety Report 8218649-7 (Version None)
Quarter: 2012Q1

REPORT INFORMATION
  Report Type: 
  Country: None (occurrence: None)
  Receive Date: 20120319
  Receipt Date: 20120309
  Transmission Date: 20120608
  Serious: Yes (Hospitalization, Other)
  Sender: FDA-Public Use
  Company Number: PHHY2012JP006860

PATIENT
  Age: 60 Year
  Sex: Female

DRUGS (5)
  1. TAXOTERE [Concomitant]
     Dosage: 3 DF, UNK
     Route: 042
     Dates: start: 20090616, end: 20090818
  2. ZOMETA [Suspect]
     Indication: METASTASES TO BONE
     Dosage: 4 MG PER ADMINISTRATION
     Route: 041
     Dates: start: 20070322, end: 20090728
  3. FARESTON [Concomitant]
     Dosage: 120 MG, UNK
     Route: 048
     Dates: start: 20080429, end: 20090119
  4. MEDROXYPROGESTERONE ACETATE [Concomitant]
     Dosage: 600 MG, UNK
     Route: 048
     Dates: start: 20090316, end: 20090602
  5. FEMARA [Concomitant]
     Dosage: 2.5 MG, UNK
     Route: 048
     Dates: start: 20090120, end: 20090316

REACTIONS (12)
  - PAIN IN JAW [None]
  - TENDERNESS [None]
  - OSTEONECROSIS OF JAW [None]
  - CELLULITIS [None]
  - GINGIVAL INFECTION [None]
  - LYMPH NODE PAIN [None]
  - BONE LESION [None]
  - APHAGIA [None]
  - SINUSITIS [None]
  - EXPOSED BONE IN JAW [None]
  - GINGIVAL ERYTHEMA [None]
  - SWELLING [None]
